FAERS Safety Report 8416004-8 (Version None)
Quarter: 2012Q2

REPORT INFORMATION
  Report Type: 
  Country: None (occurrence: None)
  Receive Date: 20120606
  Receipt Date: 20110617
  Transmission Date: 20120825
  Serious: No
  Sender: FDA-Public Use
  Company Number: US-PFIZER INC-2011133765

PATIENT
  Sex: Female
  Weight: 100 kg

DRUGS (8)
  1. IBUPROFEN (ADVIL) [Suspect]
     Indication: PAIN
  2. METOPROLOL [Concomitant]
     Indication: BLOOD PRESSURE ABNORMAL
     Dosage: 25 MG, 2X/DAY
  3. FEXOFENADINE HYDROCHLORIDE [Concomitant]
     Dosage: 180 MG, DAILY
     Dates: start: 20110101
  4. POTASSIUM CHLORIDE [Concomitant]
     Dosage: 10 MEQ, DAILY
     Dates: start: 20110101
  5. NEXIUM [Concomitant]
     Dosage: 40 MG, DAILY
     Dates: start: 20110101
  6. LISINOPRIL [Concomitant]
     Indication: BLOOD PRESSURE ABNORMAL
     Dosage: DAILY
  7. IBUPROFEN (ADVIL) [Suspect]
     Indication: POLYARTHRITIS
     Dosage: 2 TABLETS
     Route: 048
     Dates: start: 20110617
  8. FUROSEMIDE [Concomitant]
     Indication: DIURETIC THERAPY
     Dosage: 20 MG, DAILY
     Dates: start: 20070101

REACTIONS (2)
  - BLOOD GLUCOSE INCREASED [None]
  - INCORRECT DOSE ADMINISTERED [None]
